FAERS Safety Report 23706428 (Version 1)
Quarter: 2024Q2

REPORT INFORMATION
  Report Type: Spontaneous
  Country: US (occurrence: US)
  Receive Date: 20240404
  Receipt Date: 20240404
  Transmission Date: 20240716
  Serious: No
  Sender: FDA-Public Use
  Company Number: US-SA-SAC20240329001040

PATIENT
  Sex: Female
  Weight: 78.92 kg

DRUGS (5)
  1. DUPIXENT [Suspect]
     Active Substance: DUPILUMAB
     Indication: Dermatitis atopic
     Dosage: 300 MG, QOW
     Route: 058
     Dates: start: 201905
  2. WEGOVY [Concomitant]
     Active Substance: SEMAGLUTIDE
  3. PREDNISONE [Concomitant]
     Active Substance: PREDNISONE
  4. TIZANIDINE HYDROCHLORIDE [Concomitant]
     Active Substance: TIZANIDINE HYDROCHLORIDE
  5. ZETIA [Concomitant]
     Active Substance: EZETIMIBE

REACTIONS (1)
  - Skin exfoliation [Unknown]
